FAERS Safety Report 11222392 (Version 1)
Quarter: 2015Q2

REPORT INFORMATION
  Report Type: Report from Study
  Country: US (occurrence: US)
  Receive Date: 20150626
  Receipt Date: 20150626
  Transmission Date: 20150821
  Serious: No
  Sender: FDA-Public Use
  Company Number: US-ALEXION-A201502355

PATIENT
  Age: 1 Year
  Sex: Male
  Weight: 8.8 kg

DRUGS (1)
  1. ASFOTASE ALFA [Suspect]
     Active Substance: ASFOTASE ALFA
     Indication: HYPOPHOSPHATASIA
     Dosage: 6 MG/KG, TIW
     Route: 058
     Dates: start: 20141210

REACTIONS (1)
  - Vomiting [Recovered/Resolved]

NARRATIVE: CASE EVENT DATE: 20150602
